FAERS Safety Report 8910454 (Version 2)
Quarter: 2012Q4

REPORT INFORMATION
  Report Type: 
  Country: US (occurrence: US)
  Receive Date: 20121114
  Receipt Date: 20121204
  Transmission Date: 20130627
  Serious: Yes (Hospitalization, Other)
  Sender: FDA-Public Use
  Company Number: US-CELGENEUS-163-21880-12102435

PATIENT
  Age: 66 None
  Sex: Female
  Weight: 77.18 kg

DRUGS (1)
  1. REVLIMID [Suspect]
     Indication: MDS
     Dosage: 10 Milligram
     Route: 048
     Dates: start: 201209

REACTIONS (3)
  - Jaundice [Unknown]
  - Thrombosis [Not Recovered/Not Resolved]
  - Full blood count decreased [Unknown]
